FAERS Safety Report 12942673 (Version 7)
Quarter: 2016Q4

REPORT INFORMATION
  Report Type: Report from Study
  Country: CN (occurrence: CN)
  Receive Date: 20161115
  Receipt Date: 20161221
  Transmission Date: 20170207
  Serious: Yes (Life-Threatening, Hospitalization)
  Sender: FDA-Public Use
  Company Number: PHHO2016CN016699

PATIENT
  Age: 40 Year
  Sex: Female
  Weight: 47 kg

DRUGS (18)
  1. FUROSEMIDE. [Concomitant]
     Active Substance: FUROSEMIDE
     Indication: RHEUMATIC HEART DISEASE
     Dosage: UNK
     Route: 065
     Dates: start: 20151216, end: 20160328
  2. SILIBININ [Concomitant]
     Active Substance: SILIBININ
     Indication: ASPARTATE AMINOTRANSFERASE INCREASED
  3. URSODEOXYCHOLIC ACID [Concomitant]
     Active Substance: URSODIOL
     Indication: GAMMA-GLUTAMYLTRANSFERASE INCREASED
  4. GLUCUROLACTONE [Concomitant]
     Active Substance: GLUCUROLACTONE
     Indication: ASPARTATE AMINOTRANSFERASE INCREASED
  5. SILIBININ [Concomitant]
     Active Substance: SILIBININ
     Indication: ALANINE AMINOTRANSFERASE INCREASED
     Dosage: UNK
     Route: 065
     Dates: start: 20160104, end: 20160208
  6. SILIBININ [Concomitant]
     Active Substance: SILIBININ
     Indication: GAMMA-GLUTAMYLTRANSFERASE INCREASED
  7. BICYCLOL [Concomitant]
     Active Substance: BICYCLOL
     Indication: ALANINE AMINOTRANSFERASE INCREASED
  8. BIFENDATE [Concomitant]
     Indication: ALANINE AMINOTRANSFERASE INCREASED
     Dosage: UNK
     Route: 065
     Dates: start: 20160322, end: 20160608
  9. BIFENDATE [Concomitant]
     Indication: ASPARTATE AMINOTRANSFERASE INCREASED
  10. LDK378 [Suspect]
     Active Substance: CERITINIB
     Indication: NON-SMALL CELL LUNG CANCER
     Dosage: 750 MG, QD
     Route: 048
     Dates: start: 20150901, end: 20160316
  11. BICYCLOL [Concomitant]
     Active Substance: BICYCLOL
     Indication: ASPARTATE AMINOTRANSFERASE INCREASED
     Dosage: UNK
     Route: 065
     Dates: start: 20160315, end: 20160327
  12. BIFENDATE [Concomitant]
     Indication: GAMMA-GLUTAMYLTRANSFERASE INCREASED
  13. GLUCUROLACTONE [Concomitant]
     Active Substance: GLUCUROLACTONE
     Indication: ALANINE AMINOTRANSFERASE INCREASED
     Dosage: UNK
     Route: 065
     Dates: start: 20151222, end: 20160104
  14. URSODEOXYCHOLIC ACID [Concomitant]
     Active Substance: URSODIOL
     Indication: ASPARTATE AMINOTRANSFERASE INCREASED
     Dosage: UNK
     Route: 065
     Dates: start: 20160315, end: 20160608
  15. LDK378 [Suspect]
     Active Substance: CERITINIB
     Dosage: 600 MG, QD
     Route: 048
     Dates: start: 20160328, end: 20161111
  16. BICYCLOL [Concomitant]
     Active Substance: BICYCLOL
     Indication: GAMMA-GLUTAMYLTRANSFERASE INCREASED
  17. URSODEOXYCHOLIC ACID [Concomitant]
     Active Substance: URSODIOL
     Indication: ALANINE AMINOTRANSFERASE INCREASED
  18. SMECTA [Concomitant]
     Active Substance: MONTMORILLONITE
     Indication: ANTACID THERAPY
     Dosage: UNK
     Route: 065
     Dates: start: 20151008

REACTIONS (2)
  - Renal impairment [Recovered/Resolved]
  - Drug-induced liver injury [Recovered/Resolved]

NARRATIVE: CASE EVENT DATE: 20161111
